FAERS Safety Report 11717691 (Version 1)
Quarter: 2015Q4

REPORT INFORMATION
  Report Type: Spontaneous
  Country: US (occurrence: US)
  Receive Date: 20151110
  Receipt Date: 20151110
  Transmission Date: 20160304
  Serious: No
  Sender: FDA-Public Use
  Company Number: US-009507513-1511USA003863

PATIENT
  Sex: Male
  Weight: 83.9 kg

DRUGS (1)
  1. BELSOMRA [Suspect]
     Active Substance: SUVOREXANT
     Indication: INSOMNIA
     Dosage: TOTAL DAILY DOSE: 15
     Route: 048

REACTIONS (2)
  - Confusional state [Recovered/Resolved]
  - Feeling abnormal [Recovered/Resolved]
